FAERS Safety Report 24316323 (Version 3)
Quarter: 2024Q4

REPORT INFORMATION
  Report Type: Spontaneous
  Country: JP (occurrence: JP)
  Receive Date: 20240913
  Receipt Date: 20241225
  Transmission Date: 20250115
  Serious: Yes (Death, Hospitalization, Other)
  Sender: ROCHE
  Company Number: JP-CHUGAI-2024030921

PATIENT
  Age: 70 Year
  Sex: Female
  Weight: 47 kg

DRUGS (7)
  1. ENSPRYNG [Suspect]
     Active Substance: SATRALIZUMAB-MWGE
     Indication: Neuromyelitis optica spectrum disorder
     Dosage: UNK
     Route: 050
     Dates: start: 20221014, end: 2024
  2. PREDNISOLONE [Suspect]
     Active Substance: PREDNISOLONE
     Indication: Product used for unknown indication
     Dosage: UNK
     Route: 065
  3. PREDNISOLONE [Suspect]
     Active Substance: PREDNISOLONE
     Dosage: 15 MILLIGRAM
     Route: 065
     Dates: start: 202304
  4. PREDNISOLONE [Suspect]
     Active Substance: PREDNISOLONE
     Dosage: 8 MILLIGRAM
     Route: 065
     Dates: start: 202406
  5. PREDNISOLONE [Suspect]
     Active Substance: PREDNISOLONE
     Dosage: 7 MILLIGRAM
     Route: 065
     Dates: start: 202407
  6. PREDNISOLONE [Suspect]
     Active Substance: PREDNISOLONE
     Dosage: 6 MILLIGRAM
     Route: 065
     Dates: start: 202408
  7. PREDNISOLONE [Suspect]
     Active Substance: PREDNISOLONE
     Dosage: 5 MILLIGRAM
     Route: 065
     Dates: start: 202408

REACTIONS (4)
  - Fall [Unknown]
  - Compression fracture [Not Recovered/Not Resolved]
  - Pneumonia bacterial [Fatal]
  - Coronavirus infection [Unknown]

NARRATIVE: CASE EVENT DATE: 20240101
